FAERS Safety Report 5814729-1 (Version None)
Quarter: 2008Q3

REPORT INFORMATION
  Report Type: 
  Country: None (occurrence: None)
  Receive Date: 20080718
  Receipt Date: 20080317
  Transmission Date: 20090109
  Serious: No
  Sender: FDA-Public Use
  Company Number: US-KINGPHARMUSA00001-K200800336

PATIENT

DRUGS (7)
  1. LEVOXYL [Suspect]
     Indication: HYPOTHYROIDISM
     Dosage: 50 MCG, QD
     Route: 048
     Dates: start: 20040101
  2. LEVOXYL [Suspect]
     Dosage: 88 MCG, QD
     Route: 048
  3. LEVOXYL [Suspect]
     Dosage: 100 MCG, QD
     Route: 048
  4. LEVOXYL [Suspect]
     Dosage: 125 MCG, QD
     Route: 048
     Dates: start: 20080201
  5. VITAMIN TAB [Concomitant]
  6. CALCIUM [Concomitant]
  7. VITAMIN A [Concomitant]
     Indication: VITAMIN D DEFICIENCY
     Dosage: 50000 U, QW

REACTIONS (15)
  - ALOPECIA [None]
  - AMENORRHOEA [None]
  - ANXIETY [None]
  - ASTHENIA [None]
  - FATIGUE [None]
  - HAIR GROWTH ABNORMAL [None]
  - HOT FLUSH [None]
  - INSOMNIA [None]
  - LETHARGY [None]
  - LOSS OF LIBIDO [None]
  - ONYCHOCLASIS [None]
  - PAIN [None]
  - RESTLESSNESS [None]
  - THERAPEUTIC RESPONSE UNEXPECTED [None]
  - WEIGHT INCREASED [None]
